FAERS Safety Report 6472342-X (Version None)
Quarter: 2009Q4

REPORT INFORMATION
  Report Type: 
  Country: None (occurrence: None)
  Receive Date: 20091203
  Receipt Date: 20091130
  Transmission Date: 20100525
  Serious: Yes (Death)
  Sender: FDA-Public Use
  Company Number: US-GILEAD-2009-0025721

PATIENT
  Sex: Female
  Weight: 50.394 kg

DRUGS (27)
  1. LETAIRIS [Suspect]
     Indication: PULMONARY ARTERIAL HYPERTENSION
     Route: 048
     Dates: start: 20080503
  2. REVATIO [Concomitant]
  3. TOPROL-XL [Concomitant]
  4. NORVASC [Concomitant]
  5. PROCARDIA [Concomitant]
  6. SPIRONOLACTONE [Concomitant]
  7. SINGULAIR [Concomitant]
  8. FLONASE [Concomitant]
  9. SPIRIVA [Concomitant]
  10. PRO-AIR [Concomitant]
  11. OXYGEN [Concomitant]
  12. ATROVENT [Concomitant]
  13. ALBUTEROL [Concomitant]
  14. SEREVENT [Concomitant]
  15. FLOVENT [Concomitant]
  16. FLEXERIL [Concomitant]
  17. CLINDAMYCIN [Concomitant]
  18. LEVAQUIN [Concomitant]
  19. ZANTAC [Concomitant]
  20. PROTONIX [Concomitant]
  21. PRILOSEC [Concomitant]
  22. PREDNISONE [Concomitant]
  23. VICODIN [Concomitant]
  24. SYNTHROID [Concomitant]
  25. IMODIUM [Concomitant]
  26. CYTOMEL [Concomitant]
  27. FOSAMAX [Concomitant]

REACTIONS (1)
  - DEATH [None]
